FAERS Safety Report 17531615 (Version 1)
Quarter: 2020Q1

REPORT INFORMATION
  Report Type: Spontaneous
  Country: US (occurrence: US)
  Receive Date: 20200311
  Receipt Date: 20200311
  Transmission Date: 20200409
  Serious: Yes (Disabling)
  Sender: FDA-Public Use
  Company Number: None

PATIENT
  Age: 20 Year
  Sex: Female
  Weight: 58.5 kg

DRUGS (4)
  1. METRONIDAZOLE 500 MG TABLET [Suspect]
     Active Substance: METRONIDAZOLE
     Indication: TRICHOMONIASIS
     Dosage: ?          QUANTITY:1 TABLET(S);?
     Route: 048
  2. LORATADINE. [Concomitant]
     Active Substance: LORATADINE
  3. WOMWEN^S CARE VEGETARIAN/GLUTEN FREE CAPSULES [Concomitant]
  4. RENEW LIFE ULIMATE FLORA  PROBIOTIC [Concomitant]

REACTIONS (10)
  - Headache [None]
  - Dry mouth [None]
  - Malaise [None]
  - Oropharyngeal pain [None]
  - Nausea [None]
  - Sensation of foreign body [None]
  - Somnolence [None]
  - Depressed mood [None]
  - Irritability [None]
  - Clumsiness [None]

NARRATIVE: CASE EVENT DATE: 20200310
